FAERS Safety Report 5164774-7 (Version None)
Quarter: 2006Q4

REPORT INFORMATION
  Report Type: 
  Country: None (occurrence: None)
  Receive Date: 20061205
  Receipt Date: 20061205
  Transmission Date: 20070319
  Serious: Yes (Other)
  Sender: FDA-Public Use
  Company Number: DE-GLAXOSMITHKLINE-D0051681A

PATIENT
  Sex: Male

DRUGS (1)
  1. QUILONUM RETARD [Suspect]
     Indication: CLUSTER HEADACHE
     Dosage: 450MG UNKNOWN
     Route: 048

REACTIONS (2)
  - AGGRESSION [None]
  - RASH [None]
